FAERS Safety Report 17870282 (Version 1)
Quarter: 2020Q2

REPORT INFORMATION
  Report Type: Spontaneous
  Country: US (occurrence: US)
  Receive Date: 20200608
  Receipt Date: 20200608
  Transmission Date: 20200714
  Serious: No
  Sender: FDA-Public Use
  Company Number: US-EMCURE PHARMACEUTICALS LTD-2020-EPL-000683

PATIENT

DRUGS (7)
  1. CYCLOSPORIN [Concomitant]
     Active Substance: CYCLOSPORINE
  2. HUMLOG [Concomitant]
  3. VIT D [Concomitant]
     Active Substance: VITAMIN D NOS
  4. TETRACYCLINE HYDROCHLORIDE. [Suspect]
     Active Substance: TETRACYCLINE HYDROCHLORIDE
     Indication: SKIN INFECTION
     Dosage: 3 CAPSULES A DAY
     Dates: start: 20190930, end: 20191009
  5. LASIX [Concomitant]
     Active Substance: FUROSEMIDE
  6. DULOXITINE [Concomitant]
     Active Substance: DULOXETINE
  7. FOLIC ACID. [Concomitant]
     Active Substance: FOLIC ACID

REACTIONS (1)
  - Drug ineffective [Unknown]

NARRATIVE: CASE EVENT DATE: 20190930
